FAERS Safety Report 6905002-9 (Version None)
Quarter: 2010Q3

REPORT INFORMATION
  Report Type: 
  Country: None (occurrence: None)
  Receive Date: 20100804
  Receipt Date: 20090825
  Transmission Date: 20110219
  Serious: Yes (Other)
  Sender: FDA-Public Use
  Company Number: US-PFIZER INC-2009205747

PATIENT
  Sex: Female

DRUGS (6)
  1. LYRICA [Suspect]
     Indication: MIGRAINE
     Dosage: 225 MG, 2X/DAY
  2. RELPAX [Suspect]
     Dosage: UNK
  3. PAXIL [Concomitant]
     Dosage: UNK
  4. KLONOPIN [Concomitant]
     Dosage: UNK
  5. MECLIZINE [Concomitant]
     Dosage: UNK
  6. PROTONIX [Concomitant]
     Dosage: UNK

REACTIONS (17)
  - DIZZINESS [None]
  - DRUG INEFFECTIVE [None]
  - DYSURIA [None]
  - ENZYME ABNORMALITY [None]
  - FACIAL PAIN [None]
  - INCREASED APPETITE [None]
  - MEMORY IMPAIRMENT [None]
  - MIGRAINE [None]
  - MUSCULOSKELETAL STIFFNESS [None]
  - NIGHTMARE [None]
  - SLEEP TALKING [None]
  - SOMNOLENCE [None]
  - SPEECH DISORDER [None]
  - URINARY INCONTINENCE [None]
  - VISION BLURRED [None]
  - VISUAL IMPAIRMENT [None]
  - WEIGHT INCREASED [None]
